FAERS Safety Report 8324487-7 (Version None)
Quarter: 2012Q2

REPORT INFORMATION
  Report Type: 
  Country: None (occurrence: None)
  Receive Date: 20120501
  Receipt Date: 20120427
  Transmission Date: 20120825
  Serious: Yes (Other)
  Sender: FDA-Public Use
  Company Number: US-PFIZER INC-2012105273

PATIENT
  Sex: Male
  Weight: 109 kg

DRUGS (2)
  1. DEPAKOTE [Concomitant]
     Dosage: 500 MG; UNK
  2. GEODON [Suspect]
     Indication: BIPOLAR DISORDER
     Dosage: 80 MG, 1X/DAY
     Route: 048
     Dates: start: 20120413

REACTIONS (3)
  - FEELING HOT [None]
  - BODY TEMPERATURE INCREASED [None]
  - HEART RATE INCREASED [None]
